FAERS Safety Report 10196784 (Version 1)
Quarter: 2014Q2

REPORT INFORMATION
  Report Type: Spontaneous
  Country: SE (occurrence: SE)
  Receive Date: 20140527
  Receipt Date: 20140527
  Transmission Date: 20141212
  Serious: Yes (Other)
  Sender: FDA-Public Use
  Company Number: SE-MYLANLABS-2014S1011422

PATIENT
  Sex: Female

DRUGS (6)
  1. BACLOFEN [Suspect]
     Indication: MULTIPLE SCLEROSIS
     Dates: start: 20140404
  2. METFORMIN [Concomitant]
     Indication: DIABETES MELLITUS
     Dosage: 2 TABLETS BID
     Dates: start: 1992
  3. TRESIBA [Concomitant]
     Indication: DIABETES MELLITUS
     Dosage: 48 UNITS IN THE MORNING
     Dates: start: 201401
  4. NOVORAPID [Concomitant]
     Indication: DIABETES MELLITUS
     Dosage: 4-8 UNITS WHEN NEEDED
  5. VITAMIN B12 [Concomitant]
     Indication: PRODUCT USED FOR UNKNOWN INDICATION
  6. FOLIC ACID [Concomitant]
     Indication: PRODUCT USED FOR UNKNOWN INDICATION

REACTIONS (7)
  - Muscle spasms [Unknown]
  - Sensory loss [Unknown]
  - Pain [Unknown]
  - Peripheral swelling [Unknown]
  - Breast swelling [Unknown]
  - Dry skin [Unknown]
  - Breast mass [Unknown]
